FAERS Safety Report 7731745-3 (Version None)
Quarter: 2011Q3

REPORT INFORMATION
  Report Type: 
  Country: None (occurrence: None)
  Receive Date: 20110906
  Receipt Date: 20110629
  Transmission Date: 20111222
  Serious: No
  Sender: FDA-Public Use
  Company Number: US-AMGEN-USASP2011033498

PATIENT
  Age: 61 Year
  Sex: Female

DRUGS (10)
  1. VITAMIN D [Concomitant]
  2. DILANTIN [Concomitant]
  3. CALTRATE + VITAMIN D [Concomitant]
  4. SKELAXIN [Concomitant]
  5. CLARINEX                           /01202601/ [Concomitant]
  6. AMBIEN [Concomitant]
  7. ZOLOFT [Concomitant]
  8. EFFEXOR [Concomitant]
  9. LEVOTHYROXINE SODIUM [Concomitant]
  10. PROLIA [Suspect]
     Indication: OSTEOPOROSIS POSTMENOPAUSAL
     Dosage: 60 MG, Q6MO
     Dates: start: 20110616

REACTIONS (1)
  - RASH PRURITIC [None]
